FAERS Safety Report 8425033-X (Version None)
Quarter: 2012Q2

REPORT INFORMATION
  Report Type: 
  Country: None (occurrence: None)
  Receive Date: 20120605
  Receipt Date: 20120605
  Transmission Date: 20120825
  Serious: Yes (Hospitalization)
  Sender: FDA-Public Use
  Company Number: None

PATIENT
  Age: 80 Year
  Sex: Female
  Weight: 48 kg

DRUGS (2)
  1. ENOXAPARIN [Suspect]
     Indication: THROMBOSIS PROPHYLAXIS
     Dosage: LOVENOX 40MG DAILY SC
     Route: 058
     Dates: start: 20120515
  2. PRADAXA [Suspect]
     Indication: ATRIAL FIBRILLATION
     Dosage: PRADAXA 150MG BID PO
     Route: 048
     Dates: start: 20120521, end: 20120523

REACTIONS (1)
  - RECTAL HAEMORRHAGE [None]
